FAERS Safety Report 24706955 (Version 1)
Quarter: 2024Q4

REPORT INFORMATION
  Report Type: Spontaneous
  Country: GB (occurrence: GB)
  Receive Date: 20241206
  Receipt Date: 20241206
  Transmission Date: 20250114
  Serious: Yes (Other)
  Sender: SANOFI AVENTIS
  Company Number: GB-MHRA-TPP19981753C10234555YC1733137339602

PATIENT
  Age: 80 Year
  Sex: Male
  Weight: 71 kg

DRUGS (4)
  1. TAMSULOSIN HYDROCHLORIDE [Suspect]
     Active Substance: TAMSULOSIN HYDROCHLORIDE
     Indication: Product used for unknown indication
     Dosage: 400 UG
     Route: 065
  2. BECLOMETHASONE DIPROPIONATE [Concomitant]
     Active Substance: BECLOMETHASONE DIPROPIONATE
     Indication: Product used for unknown indication
     Dosage: 2 DF, Q12H; (TWO PUFFS TWICE A DAY)
     Route: 065
     Dates: start: 20240624
  3. FINASTERIDE [Concomitant]
     Active Substance: FINASTERIDE
     Indication: Product used for unknown indication
     Dosage: 1 DF, QD
     Route: 065
     Dates: start: 20240624
  4. LANSOPRAZOLE [Concomitant]
     Active Substance: LANSOPRAZOLE
     Indication: Prophylaxis
     Dosage: 1 DF, QD
     Route: 065
     Dates: start: 20240624

REACTIONS (2)
  - Syncope [Unknown]
  - Nausea [Recovered/Resolved]
